FAERS Safety Report 9658095 (Version 1)
Quarter: 2013Q4

REPORT INFORMATION
  Report Type: Spontaneous
  Country: CH (occurrence: CH)
  Receive Date: 20131030
  Receipt Date: 20131030
  Transmission Date: 20140711
  Serious: Yes (Other)
  Sender: FDA-Public Use
  Company Number: PHHY2013CH121841

PATIENT
  Sex: Female

DRUGS (2)
  1. CITALOPRAM [Suspect]
     Indication: DEPRESSION
     Dosage: 60 MG, QD
     Route: 002
     Dates: start: 20120214, end: 20130121
  2. TRITTICO [Suspect]
     Indication: DEPRESSION
     Dosage: 200 MG, QD
     Dates: start: 20111201, end: 20130121

REACTIONS (4)
  - Urinary tract malformation [Unknown]
  - Bladder agenesis [Unknown]
  - Kidney malformation [Unknown]
  - Maternal exposure during pregnancy [Recovered/Resolved]
